FAERS Safety Report 6934157-5 (Version None)
Quarter: 2010Q3

REPORT INFORMATION
  Report Type: 
  Country: None (occurrence: None)
  Receive Date: 20100820
  Receipt Date: 20100813
  Transmission Date: 20110219
  Serious: No
  Sender: FDA-Public Use
  Company Number: DE-ASTRAZENECA-2010SE23912

PATIENT
  Age: 393 Month
  Sex: Female
  Weight: 93 kg

DRUGS (2)
  1. SEROQUEL XR [Suspect]
     Indication: DEPRESSION
     Route: 048
     Dates: start: 20091001
  2. VENLAFAXINE RETARD [Suspect]
     Indication: DEPRESSION
     Route: 048
     Dates: start: 20091001

REACTIONS (5)
  - ASTHENIA [None]
  - FEELING OF BODY TEMPERATURE CHANGE [None]
  - HYPERHIDROSIS [None]
  - OROPHARYNGEAL PAIN [None]
  - SPLENOMEGALY [None]
